FAERS Safety Report 9345481 (Version 4)
Quarter: 2014Q1

REPORT INFORMATION
  Report Type: Spontaneous
  Country: US (occurrence: US)
  Receive Date: 20130613
  Receipt Date: 20140120
  Transmission Date: 20141002
  Serious: Yes (Other)
  Sender: FDA-Public Use
  Company Number: US-AMGEN-USASP2013041256

PATIENT
  Age: 60 Year
  Sex: Female
  Weight: 125 kg

DRUGS (5)
  1. NPLATE [Suspect]
     Indication: IMMUNE THROMBOCYTOPENIC PURPURA
     Dosage: 50 MUG, QWK
     Route: 058
     Dates: start: 20121109
  2. SENOKOT                            /00142201/ [Concomitant]
  3. GABAPENTIN [Concomitant]
  4. ULTRAM                             /00599202/ [Concomitant]
  5. ARIMIDEX [Concomitant]
     Indication: BREAST CANCER
     Dosage: 1 MG, QD
     Route: 048

REACTIONS (2)
  - Platelet count abnormal [Unknown]
  - Drug effect decreased [Unknown]
